FAERS Safety Report 21517570 (Version 1)
Quarter: 2022Q4

REPORT INFORMATION
  Report Type: Report from Study
  Country: BR (occurrence: BR)
  Receive Date: 20221028
  Receipt Date: 20221028
  Transmission Date: 20230112
  Serious: Yes (Other)
  Sender: FDA-Public Use
  Company Number: BR-NOVARTISPH-NVSC2022BR240253

PATIENT
  Sex: Female

DRUGS (6)
  1. EXELON [Suspect]
     Active Substance: RIVASTIGMINE TARTRATE
     Indication: Amnesia
     Dosage: 13.3 MG, QD PATCH 15 (CM2), 1 DOSAGE FORM, QD
     Route: 062
     Dates: start: 202202
  2. EXELON [Suspect]
     Active Substance: RIVASTIGMINE TARTRATE
     Indication: Dementia
  3. SIMVASTATIN [Concomitant]
     Active Substance: SIMVASTATIN
     Indication: Blood cholesterol
     Dosage: 1 DOSAGE FORM (TREATMENT STARTED BEFORE EXELON PATCH)
     Route: 065
  4. LOSARTAN [Concomitant]
     Active Substance: LOSARTAN
     Indication: Hypertension
     Dosage: 1 DOSAGE FORM (TREATMENT STARTED BEFORE EXELON PATCH)
     Route: 065
  5. BETINA [Concomitant]
     Indication: Dizziness
     Dosage: SOMETIMES USED (TREATMENT STARTED BEFORE EXELON PATCH)
     Route: 065
  6. ASPIRIN\DIHYDROXYALUMINUM AMINOACETATE ANHYDROUS\MAGNESIUM CARBONATE [Concomitant]
     Active Substance: ASPIRIN\DIHYDROXYALUMINUM AMINOACETATE ANHYDROUS\MAGNESIUM CARBONATE
     Indication: Product used for unknown indication
     Dosage: 1 DOSAGE FORM (TREATMENT STARTED BEFORE EXELON PATCH)
     Route: 065

REACTIONS (4)
  - Hallucination [Recovered/Resolved]
  - Muscle spasms [Recovered/Resolved]
  - Fall [Recovered/Resolved]
  - Off label use [Unknown]

NARRATIVE: CASE EVENT DATE: 20220101
